FAERS Safety Report 8021977-1 (Version None)
Quarter: 2012Q1

REPORT INFORMATION
  Report Type: 
  Country: None (occurrence: None)
  Receive Date: 20120104
  Receipt Date: 20111230
  Transmission Date: 20120608
  Serious: Yes (Death, Disabling)
  Sender: FDA-Public Use
  Company Number: FR-SANOFI-AVENTIS-2011SA085703

PATIENT
  Sex: Male

DRUGS (4)
  1. TENORMIN [Suspect]
     Indication: HYPERTROPHIC CARDIOMYOPATHY
     Route: 064
  2. LOVENOX [Suspect]
     Indication: HYPERTROPHIC CARDIOMYOPATHY
     Route: 064
  3. CELESTONE [Concomitant]
     Indication: HYPERTROPHIC CARDIOMYOPATHY
     Route: 064
     Dates: start: 20111110, end: 20111111
  4. CORDARONE [Suspect]
     Indication: HYPERTROPHIC CARDIOMYOPATHY
     Route: 064

REACTIONS (2)
  - FOETAL GROWTH RESTRICTION [None]
  - MATERNAL EXPOSURE DURING PREGNANCY [None]
